FAERS Safety Report 8248716-3 (Version None)
Quarter: 2012Q1

REPORT INFORMATION
  Report Type: 
  Country: None (occurrence: None)
  Receive Date: 20120331
  Receipt Date: 20120327
  Transmission Date: 20120608
  Serious: Yes (Hospitalization)
  Sender: FDA-Public Use
  Company Number: PHFR2012GB001941

PATIENT
  Age: 69 Year
  Sex: Male

DRUGS (8)
  1. BISOPROLOL FUMARATE [Concomitant]
     Indication: CARDIAC FAILURE
     Dosage: 2.5 MG,
     Route: 048
     Dates: start: 20081127
  2. OMEPRAZOLE [Concomitant]
     Indication: GASTROOESOPHAGEAL REFLUX DISEASE
     Dosage: 20 MG,
     Route: 048
     Dates: start: 20060521
  3. WARFARIN SODIUM [Concomitant]
     Route: 048
     Dates: start: 20080606
  4. BUMETANIDE [Concomitant]
     Indication: HYPERTENSION
     Dosage: 1 MG,
     Route: 048
     Dates: start: 20100520, end: 20120302
  5. LEVOTHYROXINE SODIUM [Concomitant]
     Indication: HYPOTHYROIDISM
     Dosage: 100 UG,
     Route: 048
     Dates: start: 20080626
  6. PERINDOPRIL [Concomitant]
     Dosage: 4 MG,
     Route: 048
     Dates: start: 20090521, end: 20120302
  7. SIMVASTATIN [Concomitant]
     Dosage: 40 MG,
     Route: 048
     Dates: start: 20080626, end: 20120229
  8. ALISKIREN [Suspect]
     Indication: HYPERTENSION
     Dosage: 300 MG, UNK
     Route: 048
     Dates: start: 20080522, end: 20120302

REACTIONS (1)
  - RENAL FAILURE ACUTE [None]
